FAERS Safety Report 5902244-6 (Version None)
Quarter: 2008Q3

REPORT INFORMATION
  Report Type: 
  Country: None (occurrence: None)
  Receive Date: 20080929
  Receipt Date: 20071220
  Transmission Date: 20090109
  Serious: No
  Sender: FDA-Public Use
  Company Number: US-BAUSCH-2007BL004626

PATIENT
  Age: 59 Year
  Sex: Female

DRUGS (4)
  1. TROPICAMIDE [Suspect]
     Indication: OPHTHALMOLOGICAL EXAMINATION
     Route: 047
     Dates: start: 20071218, end: 20071218
  2. PROPARACAINE HCL [Suspect]
     Indication: OPHTHALMOLOGICAL EXAMINATION
     Route: 047
     Dates: start: 20071218, end: 20071218
  3. ATIVAN [Concomitant]
     Indication: ANXIETY
  4. ATARAX [Concomitant]
     Indication: COELIAC DISEASE

REACTIONS (7)
  - CHEST PAIN [None]
  - CONDITION AGGRAVATED [None]
  - EYE IRRITATION [None]
  - EYE PAIN [None]
  - HEADACHE [None]
  - MYODESOPSIA [None]
  - VISION BLURRED [None]
